FAERS Safety Report 17319557 (Version 2)
Quarter: 2020Q4

REPORT INFORMATION
  Report Type: Report from Study
  Country: None (occurrence: CA)
  Receive Date: 20200125
  Receipt Date: 20201106
  Transmission Date: 20210113
  Serious: Yes (Hospitalization, Other)
  Sender: FDA-Public Use
  Company Number: CA-ABBVIE-19K-028-2946998-00

PATIENT
  Age: 48 Year
  Sex: Male

DRUGS (2)
  1. HUMIRA [Suspect]
     Active Substance: ADALIMUMAB
     Indication: CROHN^S DISEASE
     Route: 058
     Dates: start: 20160622, end: 2019
  2. IMURAN [Suspect]
     Active Substance: AZATHIOPRINE
     Indication: PRODUCT USED FOR UNKNOWN INDICATION
     Route: 065

REACTIONS (28)
  - Testicular microlithiasis [Not Recovered/Not Resolved]
  - Abdominal distension [Not Recovered/Not Resolved]
  - Red cell distribution width increased [Not Recovered/Not Resolved]
  - Rectal tenesmus [Unknown]
  - Red blood cell count increased [Not Recovered/Not Resolved]
  - Drug level decreased [Unknown]
  - Anal fistula [Not Recovered/Not Resolved]
  - Herpes zoster [Not Recovered/Not Resolved]
  - Herpes zoster [Not Recovered/Not Resolved]
  - Discomfort [Not Recovered/Not Resolved]
  - Large intestine polyp [Unknown]
  - Constipation [Not Recovered/Not Resolved]
  - Condition aggravated [Unknown]
  - Mean cell volume decreased [Not Recovered/Not Resolved]
  - Paradoxical psoriasis [Unknown]
  - Anorectal discomfort [Not Recovered/Not Resolved]
  - Anal haemorrhage [Not Recovered/Not Resolved]
  - Blood cholesterol increased [Not Recovered/Not Resolved]
  - Proctalgia [Unknown]
  - Inflammatory bowel disease [Unknown]
  - Testicular pain [Not Recovered/Not Resolved]
  - Anal fistula [Unknown]
  - Herpes virus infection [Not Recovered/Not Resolved]
  - Post herpetic neuralgia [Not Recovered/Not Resolved]
  - Dizziness [Not Recovered/Not Resolved]
  - Colitis [Unknown]
  - Faeces soft [Unknown]
  - Erythema [Unknown]

NARRATIVE: CASE EVENT DATE: 20160622
